FAERS Safety Report 8617365-7 (Version None)
Quarter: 2012Q3

REPORT INFORMATION
  Report Type: 
  Country: None (occurrence: None)
  Receive Date: 20120823
  Receipt Date: 20120727
  Transmission Date: 20120928
  Serious: Yes (Other)
  Sender: FDA-Public Use
  Company Number: JP-009507513-2012SP026214

PATIENT

DRUGS (24)
  1. REBETOL [Suspect]
     Dosage: 400 MG, QD
     Route: 048
     Dates: start: 20120215, end: 20120228
  2. SODIUM FERROUS CITRATE [Concomitant]
     Indication: IRON DEFICIENCY ANAEMIA
     Dosage: FORMULATION: POR
     Route: 048
  3. LIVALO [Concomitant]
     Dosage: FORMULATION: POR
     Route: 048
  4. EPADEL S [Concomitant]
     Route: 048
  5. PEG-INTRON [Suspect]
     Indication: HEPATITIS C
     Dosage: 1.5 ?G/KG, QW
     Route: 058
  6. REBETOL [Suspect]
     Indication: HEPATITIS C
     Dosage: 800 MG, QD
     Route: 048
     Dates: start: 20120117, end: 20120214
  7. REBETOL [Suspect]
     Dosage: 400 MG, QD
     Route: 048
     Dates: start: 20120307, end: 20120312
  8. REBETOL [Suspect]
     Route: 048
     Dates: start: 20120530, end: 20120627
  9. PEG-INTRON [Suspect]
     Dosage: 1.5MCG/KG/WEEK
     Route: 058
     Dates: end: 20120627
  10. ANTIVIRAL (UNSPECIFIED) [Suspect]
     Indication: HEPATITIS C
     Dosage: 2250 MG, QD
     Route: 048
     Dates: start: 20120117, end: 20120411
  11. CLARITIN REDITABS [Concomitant]
     Indication: PROPHYLAXIS
     Dosage: 10 MG, QD
     Route: 048
  12. CLARITIN REDITABS [Concomitant]
     Route: 048
  13. REBETOL [Suspect]
     Dosage: 600 MG, QD
     Route: 048
     Dates: start: 20120313, end: 20120410
  14. REBETOL [Suspect]
     Dosage: 400 MG, QD
     Route: 048
     Dates: start: 20120411
  15. REBETOL [Suspect]
     Route: 048
     Dates: start: 20120411, end: 20120508
  16. EPADEL S [Concomitant]
     Indication: HYPERLIPIDAEMIA
     Dosage: FORMULATION: POR
     Route: 048
  17. REBETOL [Suspect]
     Dosage: 600 MG, QD
     Route: 048
     Dates: start: 20120229
  18. REBETOL [Suspect]
     Route: 048
     Dates: start: 20120509, end: 20120529
  19. LIVALO [Concomitant]
     Indication: HYPERLIPIDAEMIA
     Dosage: FORMULATION: POR
     Route: 048
  20. LIVALO [Concomitant]
     Route: 048
  21. TELAVIC [Suspect]
     Indication: HEPATITIS C
     Route: 048
     Dates: start: 20120117, end: 20120411
  22. LIVALO [Concomitant]
     Route: 048
  23. LIVALO [Concomitant]
     Route: 048
  24. FEROTYM [Concomitant]
     Indication: IRON DEFICIENCY ANAEMIA
     Route: 048

REACTIONS (2)
  - RENAL DISORDER [None]
  - ANAEMIA [None]
